FAERS Safety Report 13537392 (Version 1)
Quarter: 2017Q2

REPORT INFORMATION
  Report Type: Other
  Country: US (occurrence: US)
  Receive Date: 20170511
  Receipt Date: 20170511
  Transmission Date: 20170830
  Serious: No
  Sender: FDA-Public Use
  Company Number: US-ARALEZ PHARMACEUTICALS RD INC.-SR-KEV-2017-017

PATIENT
  Age: 57 Year
  Sex: Female

DRUGS (1)
  1. KEVEYIS [Suspect]
     Active Substance: DICHLORPHENAMIDE
     Indication: PRODUCT USED FOR UNKNOWN INDICATION
     Route: 048

REACTIONS (9)
  - Fatigue [Recovered/Resolved]
  - Therapeutic response unexpected [Unknown]
  - Nausea [Unknown]
  - Muscle spasms [Unknown]
  - Decreased appetite [Recovered/Resolved]
  - Paraesthesia [Unknown]
  - Dysgeusia [Unknown]
  - Dizziness [Unknown]
  - Vertigo positional [Unknown]

NARRATIVE: CASE EVENT DATE: 20170503
